FAERS Safety Report 9511789 (Version 1)
Quarter: 2013Q3

REPORT INFORMATION
  Report Type: Spontaneous
  Country: US (occurrence: None)
  Receive Date: 20130909
  Receipt Date: 20130909
  Transmission Date: 20140515
  Serious: Yes (Other)
  Sender: FDA-Public Use
  Company Number: None

PATIENT
  Age: 81 Year
  Sex: Female
  Weight: 77.11 kg

DRUGS (12)
  1. CARTIA [Suspect]
     Indication: HYPERTENSION
     Dosage: 1 CAPSUL ONCE DAILY TAKEN BY MOUTH
     Route: 048
     Dates: start: 20130223, end: 20130823
  2. LISINIPRIL 5MG [Suspect]
     Indication: HYPERTENSION
     Dosage: 1 TAB ONCE DAILY TAKEN BY MOUTH
     Route: 048
     Dates: start: 20130223, end: 20130823
  3. WARFARIN [Concomitant]
  4. NOCTURNAL OXYGEN [Concomitant]
  5. WHITE WILLOW BARK [Concomitant]
  6. CARDIOPLUS [Concomitant]
  7. CATAPLEX B [Concomitant]
  8. CATAPLEX F [Concomitant]
  9. CYRUTA PLUS [Concomitant]
  10. MINTRAN [Concomitant]
  11. LIVAPLEX [Concomitant]
  12. COD LIVER OIL [Concomitant]

REACTIONS (10)
  - Fatigue [None]
  - Headache [None]
  - Dyspnoea [None]
  - Local swelling [None]
  - Joint swelling [None]
  - Contusion [None]
  - Weight increased [None]
  - Dizziness [None]
  - Balance disorder [None]
  - Cough [None]
